FAERS Safety Report 20301570 (Version 2)
Quarter: 2022Q1

REPORT INFORMATION
  Report Type: Report from Study
  Country: DE (occurrence: DE)
  Receive Date: 20220105
  Receipt Date: 20220113
  Transmission Date: 20220423
  Serious: Yes (Hospitalization)
  Sender: FDA-Public Use
  Company Number: DE-CELGENE-DEU-20220100131

PATIENT
  Age: 66 Year
  Sex: Male

DRUGS (2)
  1. ENASIDENIB [Suspect]
     Active Substance: ENASIDENIB
     Indication: Acute myeloid leukaemia
     Dosage: 100 MILLIGRAM
     Route: 048
     Dates: start: 20211216
  2. ENASIDENIB [Suspect]
     Active Substance: ENASIDENIB
     Dosage: 100 MILLIGRAM
     Route: 048
     Dates: start: 20211229

REACTIONS (2)
  - Graft versus host disease in gastrointestinal tract [Recovered/Resolved]
  - Acute graft versus host disease in skin [Recovered/Resolved]

NARRATIVE: CASE EVENT DATE: 20211230
